FAERS Safety Report 7544346-7 (Version None)
Quarter: 2011Q2

REPORT INFORMATION
  Report Type: 
  Country: None (occurrence: None)
  Receive Date: 20110613
  Receipt Date: 20071115
  Transmission Date: 20111010
  Serious: Yes (Death, Life-Threatening, Hospitalization, Disabling, Other)
  Sender: FDA-Public Use
  Company Number: PHFR2006GB01213

PATIENT
  Sex: Female

DRUGS (2)
  1. EPIRUBICIN [Suspect]
     Indication: BREAST CANCER
     Route: 065
  2. CLOZAPINE [Suspect]
     Indication: SCHIZOPHRENIA
     Dosage: UNK, UNK
     Route: 048
     Dates: start: 19960229

REACTIONS (20)
  - PLEURAL EFFUSION [None]
  - HAEMOGLOBIN DECREASED [None]
  - WOUND INFECTION STAPHYLOCOCCAL [None]
  - THROMBOCYTOPENIA [None]
  - ANAEMIA [None]
  - EOSINOPHIL COUNT DECREASED [None]
  - NEUTROPHIL COUNT DECREASED [None]
  - BONE MARROW DISORDER [None]
  - PANCYTOPENIA [None]
  - PAIN [None]
  - PLATELET COUNT DECREASED [None]
  - URINARY RETENTION [None]
  - LYMPHOCYTE COUNT DECREASED [None]
  - BREAST CANCER [None]
  - METASTASES TO LIVER [None]
  - RED BLOOD CELL COUNT DECREASED [None]
  - FLUID RETENTION [None]
  - URINARY TRACT OBSTRUCTION [None]
  - RENAL DISORDER [None]
  - VOMITING [None]
